FAERS Safety Report 18458056 (Version 3)
Quarter: 2021Q3

REPORT INFORMATION
  Report Type: Spontaneous
  Country: US (occurrence: US)
  Receive Date: 20201103
  Receipt Date: 20210913
  Transmission Date: 20211014
  Serious: No
  Sender: FDA-Public Use
  Company Number: US-FARMAPROD-202009-1165

PATIENT
  Age: 73 Year
  Sex: Female
  Weight: 69.55 kg

DRUGS (7)
  1. OXERVATE [Suspect]
     Active Substance: CENEGERMIN-BKBJ
     Indication: KERATITIS
     Route: 047
     Dates: start: 20200821
  2. OXERVATE [Suspect]
     Active Substance: CENEGERMIN-BKBJ
     Indication: CORNEAL TRANSPLANT
  3. ALLERGENIC CAPSULE [Concomitant]
     Route: 047
  4. BLOOD SERUM TEAR [Concomitant]
     Indication: CORNEAL EPITHELIUM DEFECT
     Dates: start: 20170417, end: 20201201
  5. ERYTHROMYCIN. [Concomitant]
     Active Substance: ERYTHROMYCIN
     Indication: LAGOPHTHALMOS
     Route: 047
     Dates: start: 20160712, end: 20200904
  6. REFRESH TEARS [Concomitant]
     Active Substance: CARBOXYMETHYLCELLULOSE SODIUM
     Indication: DRY EYE
     Dosage: 4?5 TIMES DAILY
     Route: 047
  7. PREDNISOLONE ACETATE. [Concomitant]
     Active Substance: PREDNISOLONE ACETATE
     Indication: KERATOPATHY
     Route: 047
     Dates: start: 20200605

REACTIONS (3)
  - Eye pain [Recovered/Resolved]
  - Intentional product misuse [Recovered/Resolved]
  - Periorbital pain [Recovered/Resolved]

NARRATIVE: CASE EVENT DATE: 20200824
